FAERS Safety Report 9097779 (Version 1)
Quarter: 2013Q1

REPORT INFORMATION
  Report Type: Spontaneous
  Country: GR (occurrence: GR)
  Receive Date: 20130212
  Receipt Date: 20130212
  Transmission Date: 20140127
  Serious: Yes (Other)
  Sender: FDA-Public Use
  Company Number: GR-PFIZER INC-2013049844

PATIENT
  Age: 53 Year
  Sex: Female

DRUGS (1)
  1. METHYLPREDNISOLONE [Suspect]
     Indication: SKIN LESION
     Dosage: 16 MG, ALTERNATE DAY

REACTIONS (2)
  - Chronic lymphocytic leukaemia [Recovered/Resolved]
  - Lymphocytosis [Recovered/Resolved]
